FAERS Safety Report 6135568-0 (Version None)
Quarter: 2009Q1

REPORT INFORMATION
  Report Type: 
  Country: None (occurrence: None)
  Receive Date: 20090327
  Receipt Date: 20090323
  Transmission Date: 20090719
  Serious: Yes (Other)
  Sender: FDA-Public Use
  Company Number: PHHY2009TR10804

PATIENT
  Age: 23 Year
  Sex: Female

DRUGS (1)
  1. TRILEPTAL [Suspect]
     Dosage: 1200 MG, QD

REACTIONS (2)
  - ATAXIA [None]
  - BALANCE DISORDER [None]
